FAERS Safety Report 9176873 (Version 1)
Quarter: 2013Q1

REPORT INFORMATION
  Report Type: Spontaneous
  Country: FR (occurrence: FR)
  Receive Date: 20130321
  Receipt Date: 20130321
  Transmission Date: 20140127
  Serious: Yes (Death, Life-Threatening, Hospitalization)
  Sender: FDA-Public Use
  Company Number: PHHY2013FR027358

PATIENT
  Age: 37 Year
  Sex: Female
  Weight: 64 kg

DRUGS (11)
  1. LEPONEX [Suspect]
     Dosage: 700 MG, (DAILY WITHIN 3 INTAKES)
     Route: 048
     Dates: start: 2011, end: 201301
  2. LEPONEX [Suspect]
     Dosage: 550 MG, (DAILY WITHIN 3 INTAKES)
     Route: 048
     Dates: start: 201301, end: 20130304
  3. LOPERAMIDE [Suspect]
     Dosage: 2 DF, QD
     Dates: start: 20130304, end: 20130304
  4. AKINETON//BIPERIDEN [Concomitant]
     Dosage: 4 MG, QD
     Dates: start: 20130304, end: 20130304
  5. ATARAX [Suspect]
     Dosage: 100 MG, QD
  6. TRANSIPEG//MACROGOL [Concomitant]
     Indication: CONSTIPATION
     Dosage: PRN
     Dates: end: 20130228
  7. LANSOYL [Concomitant]
     Indication: CONSTIPATION
     Dosage: PRN
     Dates: end: 20130228
  8. NORMACOL [Concomitant]
     Indication: CONSTIPATION
     Dosage: PRN
     Dates: end: 20130228
  9. IMOVANE [Concomitant]
     Dosage: UNK
     Dates: end: 20130228
  10. LAMICTAL [Concomitant]
     Dosage: 100 MG, QD
     Dates: end: 20130114
  11. TERCIAN [Concomitant]
     Dosage: UNK
     Dates: end: 20130114

REACTIONS (4)
  - Megacolon [Fatal]
  - Abdominal distension [Fatal]
  - Gastrointestinal necrosis [Fatal]
  - Lactic acidosis [Fatal]
